FAERS Safety Report 6767526-7 (Version None)
Quarter: 2010Q2

REPORT INFORMATION
  Report Type: 
  Country: None (occurrence: None)
  Receive Date: 20100614
  Receipt Date: 20100610
  Transmission Date: 20101027
  Serious: Yes (Hospitalization, Other)
  Sender: FDA-Public Use
  Company Number: FR-BRISTOL-MYERS SQUIBB COMPANY-15050065

PATIENT
  Age: 71 Year
  Sex: Female
  Weight: 63 kg

DRUGS (7)
  1. ORENCIA [Suspect]
     Indication: RHEUMATOID ARTHRITIS
     Dosage: INTERRUPTED ON 17MAR2010 + RESTARTED ON 11MAY2010
     Dates: start: 20090619
  2. CORTANCYL [Suspect]
     Indication: RHEUMATOID ARTHRITIS
     Route: 048
     Dates: start: 20020101
  3. FLUDEX [Concomitant]
     Indication: HYPERTENSION
     Dosage: 1DF-1TABS
     Route: 048
     Dates: start: 20070101
  4. PLAVIX [Concomitant]
     Route: 048
     Dates: start: 20000101
  5. EFFEXOR [Concomitant]
     Indication: DEPRESSION
     Route: 048
     Dates: start: 20090101
  6. CALCIDOSE [Concomitant]
     Indication: OSTEOPOROSIS
     Dosage: 1DF-1TABS
     Route: 048
     Dates: start: 20000101
  7. VITAMIN D [Concomitant]
     Indication: OSTEOPOROSIS
     Dosage: 1DF-1TABS
     Route: 048
     Dates: start: 20000101

REACTIONS (2)
  - FACIAL PALSY [None]
  - HERPES ZOSTER [None]
